FAERS Safety Report 9708594 (Version 1)
Quarter: 2013Q4

REPORT INFORMATION
  Report Type: Spontaneous
  Country: DE (occurrence: DE)
  Receive Date: 20131125
  Receipt Date: 20131125
  Transmission Date: 20140711
  Serious: Yes (Hospitalization)
  Sender: FDA-Public Use
  Company Number: DE-TEVA-445513GER

PATIENT
  Age: 57 Year
  Sex: Female

DRUGS (2)
  1. VENLAFAXIN [Suspect]
     Route: 048
     Dates: start: 20130406, end: 20130408
  2. MIRTAZAPIN [Suspect]
     Route: 048
     Dates: start: 20130201, end: 20130408

REACTIONS (3)
  - Eyelid oedema [Recovered/Resolved]
  - Oedema peripheral [Recovered/Resolved]
  - Pain in extremity [Recovered/Resolved]
